FAERS Safety Report 4637621-7 (Version None)
Quarter: 2005Q2

REPORT INFORMATION
  Report Type: 
  Country: None (occurrence: None)
  Receive Date: 20050325
  Receipt Date: 20041123
  Transmission Date: 20051028
  Serious: No
  Sender: FDA-Public Use
  Company Number: USA041184572

PATIENT
  Age: 69 Year
  Sex: Female

DRUGS (1)
  1. FORTEO [Suspect]
     Indication: BONE DENSITY DECREASED
     Dosage: 20 UG/1 DAY
     Dates: start: 20040901

REACTIONS (2)
  - FEELING ABNORMAL [None]
  - NASAL CONGESTION [None]
